FAERS Safety Report 5294206-X (Version None)
Quarter: 2007Q2

REPORT INFORMATION
  Report Type: 
  Country: None (occurrence: None)
  Receive Date: 20070412
  Receipt Date: 20070402
  Transmission Date: 20071010
  Serious: Yes (Disabling)
  Sender: FDA-Public Use
  Company Number: JP-SP-2007-00692

PATIENT
  Age: 75 Year
  Sex: Male

DRUGS (5)
  1. IMMUCYST [Suspect]
     Indication: BLADDER CANCER
     Dosage: 81 MG, 40.5 MG
     Route: 043
     Dates: start: 20061023, end: 20061225
  2. IMMUCYST [Suspect]
     Dosage: 81 MG, 40.5 MG
     Route: 043
     Dates: start: 20061023, end: 20061225
  3. IMMUCYST [Suspect]
     Dosage: 81 MG, 40.5 MG
     Route: 043
     Dates: start: 20061023, end: 20061225
  4. AMLODIPINE BESYLATE [Concomitant]
     Dates: start: 20060925
  5. NAFTOPIDIL [Concomitant]
     Dates: start: 20060925

REACTIONS (4)
  - CYSTITIS [None]
  - INCORRECT DOSE ADMINISTERED [None]
  - PYREXIA [None]
  - URINARY BLADDER HAEMORRHAGE [None]
